FAERS Safety Report 12219360 (Version 2)
Quarter: 2016Q2

REPORT INFORMATION
  Report Type: Report from Study
  Country: US (occurrence: US)
  Receive Date: 20160329
  Receipt Date: 20160422
  Transmission Date: 20160815
  Serious: Yes (Hospitalization, Other)
  Sender: FDA-Public Use
  Company Number: US-GILEAD-2016-0205430

PATIENT
  Age: 62 Year
  Sex: Male

DRUGS (3)
  1. OLYSIO [Concomitant]
     Active Substance: SIMEPREVIR
     Dosage: UNK
     Dates: end: 201409
  2. SOFOSBUVIR [Suspect]
     Active Substance: SOFOSBUVIR
     Indication: HEPATITIS C
     Dosage: 400 MG, UNK
     Route: 048
     Dates: end: 201409
  3. SOFOSBUVIR [Suspect]
     Active Substance: SOFOSBUVIR
     Dosage: ^JUST COMPLETED^
     Route: 048

REACTIONS (4)
  - Bile duct cancer [Unknown]
  - AIDS dementia complex [Unknown]
  - Adenocarcinoma pancreas [Unknown]
  - Pancreatic carcinoma [Unknown]
